FAERS Safety Report 15428497 (Version 4)
Quarter: 2019Q2

REPORT INFORMATION
  Report Type: Spontaneous
  Country: JP (occurrence: JP)
  Receive Date: 20180926
  Receipt Date: 20190417
  Transmission Date: 20190711
  Serious: Yes (Hospitalization, Other)
  Sender: FDA-Public Use
  Company Number: JP-ROCHE-2189804

PATIENT
  Age: 35 Year
  Sex: Female

DRUGS (3)
  1. CELLCEPT [Suspect]
     Active Substance: MYCOPHENOLATE MOFETIL\MYCOPHENOLATE MOFETIL HYDROCHLORIDE
     Indication: PROPHYLAXIS AGAINST TRANSPLANT REJECTION
     Dosage: DOSAGE IS UNCERTAIN.
     Route: 048
  2. METHYLPREDNISOLONE. [Concomitant]
     Active Substance: METHYLPREDNISOLONE
     Indication: RENAL TRANSPLANT
     Dosage: DOSAGE IS UNCERTAIN.
     Route: 065
  3. TACROLIMUS HYDRATE [Suspect]
     Active Substance: TACROLIMUS
     Indication: RENAL TRANSPLANT
     Dosage: DOSAGE IS UNCERTAIN.
     Route: 065

REACTIONS (5)
  - Haemophagocytic lymphohistiocytosis [Unknown]
  - Infected lymphocele [Unknown]
  - Infective spondylitis [Recovering/Resolving]
  - Lupus enteritis [Unknown]
  - Thrombotic microangiopathy [Unknown]
